FAERS Safety Report 21887571 (Version 1)
Quarter: 2023Q1

REPORT INFORMATION
  Report Type: Spontaneous
  Country: NO (occurrence: NO)
  Receive Date: 20230120
  Receipt Date: 20230120
  Transmission Date: 20230418
  Serious: Yes (Hospitalization, Other)
  Sender: FDA-Public Use
  Company Number: None

PATIENT
  Age: 31 Year
  Sex: Female

DRUGS (4)
  1. SAXENDA [Suspect]
     Active Substance: LIRAGLUTIDE
     Indication: Obesity
     Dosage: UNK
     Dates: start: 202111, end: 202207
  2. SAXENDA [Suspect]
     Active Substance: LIRAGLUTIDE
     Indication: Overweight
  3. ESCITALOPRAM [Concomitant]
     Active Substance: ESCITALOPRAM OXALATE
     Indication: Restlessness
  4. ESCITALOPRAM [Concomitant]
     Active Substance: ESCITALOPRAM OXALATE
     Indication: Anxiety
     Dosage: 10 MG, QD

REACTIONS (4)
  - Cholecystectomy [Unknown]
  - Pancreatitis [Recovered/Resolved]
  - Cholelithiasis [Unknown]
  - Biliary colic [Recovered/Resolved]

NARRATIVE: CASE EVENT DATE: 20220118
